FAERS Safety Report 7688839-0 (Version None)
Quarter: 2011Q3

REPORT INFORMATION
  Report Type: 
  Country: None (occurrence: None)
  Receive Date: 20110817
  Receipt Date: 20110808
  Transmission Date: 20111222
  Serious: Yes (Other)
  Sender: FDA-Public Use
  Company Number: PHHY2011US61815

PATIENT
  Sex: Female

DRUGS (10)
  1. CHEMOTHERAPEUTICS [Concomitant]
     Route: 048
  2. ZOMETA [Suspect]
     Indication: RENAL CELL CARCINOMA
     Dosage: 4 MG, MONTHLY
     Route: 042
     Dates: start: 20101020
  3. MULTI-VITAMINS [Concomitant]
     Dosage: UNK UKN, UNK
     Route: 048
  4. AFINITOR [Suspect]
     Indication: RENAL CELL CARCINOMA
     Dosage: 5 MG, QD
     Route: 048
     Dates: start: 20101001
  5. GLIPIZIDE [Concomitant]
     Indication: DIABETES MELLITUS
     Dosage: 10 MG, BID
     Route: 048
     Dates: start: 20101001
  6. FERROUS SULFATE TAB [Concomitant]
     Dosage: 325 MG,
     Route: 048
  7. METFORMIN HCL [Concomitant]
     Indication: DIABETES MELLITUS
     Dosage: 500 MG,
     Route: 048
     Dates: start: 20110601
  8. EZETIMIBE/SAMVASTATIN [Concomitant]
     Dosage: 10 /40MG,
     Route: 048
     Dates: start: 20110601
  9. ZOMETA [Suspect]
     Indication: METASTASES TO BONE
  10. FOLIC ACID [Concomitant]
     Dosage: 1 MG, QD
     Route: 048
     Dates: start: 20110601

REACTIONS (12)
  - RENAL FUNCTION TEST ABNORMAL [None]
  - HAEMOGLOBIN DECREASED [None]
  - MEAN CELL HAEMOGLOBIN DECREASED [None]
  - MEAN PLATELET VOLUME DECREASED [None]
  - BLOOD CREATININE INCREASED [None]
  - GLOMERULAR FILTRATION RATE INCREASED [None]
  - RED CELL DISTRIBUTION WIDTH INCREASED [None]
  - BLOOD COUNT ABNORMAL [None]
  - BLOOD GLUCOSE INCREASED [None]
  - RED BLOOD CELL COUNT DECREASED [None]
  - MEAN CELL VOLUME ABNORMAL [None]
  - NEUTROPHIL COUNT INCREASED [None]
